FAERS Safety Report 4317486-3 (Version None)
Quarter: 2004Q1

REPORT INFORMATION
  Report Type: 
  Country: None (occurrence: None)
  Receive Date: 20040312
  Receipt Date: 20040310
  Transmission Date: 20041129
  Serious: Yes (Death)
  Sender: FDA-Public Use
  Company Number: STA-AE-04-MTX-100

PATIENT
  Age: 66 Year
  Sex: Female

DRUGS (1)
  1. METHOTREXATE [Suspect]
     Dosage: ORAL
     Route: 048

REACTIONS (3)
  - COMPUTERISED TOMOGRAM ABNORMAL [None]
  - DIFFUSE ALVEOLAR DAMAGE [None]
  - PNEUMONITIS [None]
